FAERS Safety Report 6408946 (Version 2)
Quarter: 2013Q1

REPORT INFORMATION
  Report Type: Spontaneous
  Country: SE (occurrence: None)
  Receive Date: 20070827
  Receipt Date: 20130103
  Transmission Date: 20140127
  Serious: Yes (Other)
  Sender: FDA-Public Use
  Company Number: 2007US-09292

PATIENT
  Age: 81 Year
  Sex: Male

DRUGS (10)
  1. ALLOPURINOL [Suspect]
     Indication: PRODUCT USED FOR UNKNOWN INDICATION
  2. CITALOPRAM [Suspect]
     Indication: ATRIAL FIBRILLATION
  3. VERAPAMIL [Suspect]
     Indication: PRODUCT USED FOR UNKNOWN INDICATION
  4. WARFARIN [Suspect]
     Indication: PRODUCT USED FOR UNKNOWN INDICATION
  5. DETRUSITOL [Suspect]
     Indication: PRODUCT USED FOR UNKNOWN INDICATION
  6. HEMINEVRIN [Suspect]
     Indication: PRODUCT USED FOR UNKNOWN INDICATION
  7. LACTULOSE [Suspect]
     Indication: PRODUCT USED FOR UNKNOWN INDICATION
  8. UNSPECIFIED INGREDIENT [Suspect]
     Indication: PRODUCT USED FOR UNKNOWN INDICATION
  9. ACETAMINOPHEN [Suspect]
     Indication: PRODUCT USED FOR UNKNOWN INDICATION
  10. UNSPECIFIED INGREDIENT [Suspect]
     Indication: PRODUCT USED FOR UNKNOWN INDICATION

REACTIONS (2)
  - Cerebral haemorrhage [None]
  - Drug interaction [None]
